FAERS Safety Report 8895519 (Version 1)
Quarter: 2012Q4

REPORT INFORMATION
  Report Type: 
  Country: US (occurrence: US)
  Receive Date: 20121107
  Receipt Date: 20121107
  Transmission Date: 20130627
  Serious: No
  Sender: FDA-Public Use
  Company Number: US-PFIZER INC-2012274466

PATIENT
  Age: 88 Year
  Sex: Female
  Weight: 81.63 kg

DRUGS (4)
  1. PREMARIN VAGINAL CREAM [Suspect]
     Indication: POLLAKIURIA
     Dosage: three times a week (Monday, Wednesday and Friday) at night
     Route: 067
     Dates: end: 20121029
  2. ESTRACE [Suspect]
     Dosage: UNK
     Route: 067
  3. DIOVAN (VALSARTAN) [Concomitant]
     Indication: BLOOD PRESSURE HIGH
     Dosage: 150 mg, daily
  4. VITAMINS [Concomitant]
     Dosage: UNK,daily

REACTIONS (5)
  - Drug hypersensitivity [Unknown]
  - Abdominal pain upper [Unknown]
  - Abdominal pain [Unknown]
  - Abdominal discomfort [Unknown]
  - Abdominal pain upper [Unknown]
